FAERS Safety Report 17557648 (Version 3)
Quarter: 2020Q1

REPORT INFORMATION
  Report Type: Report from Study
  Country: FR (occurrence: FR)
  Receive Date: 20200318
  Receipt Date: 20200331
  Transmission Date: 20200409
  Serious: Yes (Other)
  Sender: FDA-Public Use
  Company Number: FR-ROCHE-2566800

PATIENT
  Sex: Female
  Weight: 50 kg

DRUGS (2)
  1. TAXOL [Suspect]
     Active Substance: PACLITAXEL
     Indication: TRIPLE NEGATIVE BREAST CANCER
     Route: 042
  2. ATEZOLIZUMAB. [Suspect]
     Active Substance: ATEZOLIZUMAB
     Indication: TRIPLE NEGATIVE BREAST CANCER
     Route: 042
     Dates: start: 20200304

REACTIONS (12)
  - Musculoskeletal stiffness [Recovering/Resolving]
  - Neck pain [Unknown]
  - Abdominal pain [Unknown]
  - Change of bowel habit [Unknown]
  - Nausea [Unknown]
  - Dizziness [Unknown]
  - Constipation [Recovering/Resolving]
  - Pyrexia [Recovered/Resolved]
  - Abdominal pain upper [Unknown]
  - Paraesthesia [Unknown]
  - Headache [Unknown]
  - Syncope [Unknown]
